FAERS Safety Report 9416922 (Version 1)
Quarter: 2013Q3

REPORT INFORMATION
  Report Type: Spontaneous
  Country: DE (occurrence: None)
  Receive Date: 20130719
  Receipt Date: 20130719
  Transmission Date: 20140515
  Serious: Yes (Hospitalization)
  Sender: FDA-Public Use
  Company Number: ABR_01012_2013

PATIENT
  Age: 33 Year
  Sex: Male

DRUGS (1)
  1. AMPHETAMINE [Suspect]
     Indication: PRODUCT USED FOR UNKNOWN INDICATION
     Dosage: DF [2 DAYS BEFORE NEUROLOGICAL SYMPTOMS]) (DF 16 DAYS BEFORE NEUROLOGICAL SYMPTOMS])

REACTIONS (1)
  - Cerebral artery occlusion [None]
